FAERS Safety Report 23576718 (Version 1)
Quarter: 2024Q1

REPORT INFORMATION
  Report Type: Spontaneous
  Country: CN (occurrence: CN)
  Receive Date: 20240228
  Receipt Date: 20240228
  Transmission Date: 20240410
  Serious: Yes (Other)
  Sender: FDA-Public Use
  Company Number: CN-PFIZER INC-PV202400026831

PATIENT
  Age: 92 Year
  Sex: Female
  Weight: 45 kg

DRUGS (3)
  1. SOLU-MEDROL [Suspect]
     Active Substance: METHYLPREDNISOLONE SODIUM SUCCINATE
     Indication: Febrile infection
     Dosage: 40 MG, 1X/DAY
     Route: 041
     Dates: start: 20240219, end: 20240221
  2. SOLU-MEDROL [Suspect]
     Active Substance: METHYLPREDNISOLONE SODIUM SUCCINATE
     Indication: Antiinflammatory therapy
     Dosage: 20 MG, 1X/DAY
     Route: 041
  3. MEROPENEM [Suspect]
     Active Substance: MEROPENEM
     Indication: Febrile infection
     Dosage: 1 G, 3X/DAY
     Route: 041
     Dates: start: 20240219, end: 20240221

REACTIONS (4)
  - Mental disorder [Recovered/Resolved]
  - Confusional state [Unknown]
  - Disorganised speech [Unknown]
  - Delirium [Unknown]

NARRATIVE: CASE EVENT DATE: 20240221
